FAERS Safety Report 15892015 (Version 1)
Quarter: 2019Q1

REPORT INFORMATION
  Report Type: Report from Study
  Country: US (occurrence: US)
  Receive Date: 20190130
  Receipt Date: 20190130
  Transmission Date: 20190417
  Serious: Yes (Hospitalization)
  Sender: FDA-Public Use
  Company Number: US-EXELIXIS-CABO-18016873

PATIENT
  Age: 69 Year
  Sex: Male

DRUGS (8)
  1. TEMAZEPAM. [Concomitant]
     Active Substance: TEMAZEPAM
  2. TRAMADOL. [Concomitant]
     Active Substance: TRAMADOL
  3. PANTOPRAZOLE SODIUM. [Concomitant]
     Active Substance: PANTOPRAZOLE SODIUM
  4. CARVEDILOL. [Concomitant]
     Active Substance: CARVEDILOL
  5. DOCUSATE SODIUM. [Concomitant]
     Active Substance: DOCUSATE SODIUM
  6. WELLBUTRIN [Concomitant]
     Active Substance: BUPROPION HYDROCHLORIDE
  7. CABOMETYX [Suspect]
     Active Substance: CABOZANTINIB S-MALATE
     Indication: RENAL CANCER
     Dosage: 60 MG, QD
     Route: 048
     Dates: start: 20181011
  8. ZOFRAN [Concomitant]
     Active Substance: ONDANSETRON HYDROCHLORIDE

REACTIONS (4)
  - Decreased appetite [Not Recovered/Not Resolved]
  - Hypertension [Unknown]
  - Skin ulcer [Not Recovered/Not Resolved]
  - Haemorrhage [Recovered/Resolved]

NARRATIVE: CASE EVENT DATE: 2018
